FAERS Safety Report 7887805-X (Version None)
Quarter: 2011Q4

REPORT INFORMATION
  Report Type: 
  Country: None (occurrence: None)
  Receive Date: 20111103
  Receipt Date: 20111101
  Transmission Date: 20120403
  Serious: Yes (Other)
  Sender: FDA-Public Use
  Company Number: US-CEPHALON-2011005618

PATIENT
  Age: 55 Year
  Sex: Female

DRUGS (3)
  1. RITUXAN [Concomitant]
  2. TREANDA [Suspect]
     Indication: LYMPHOMA
     Route: 042
  3. ANTI-VIRAL [Concomitant]

REACTIONS (2)
  - COLITIS [None]
  - CYTOMEGALOVIRUS INFECTION [None]
